FAERS Safety Report 18775499 (Version 1)
Quarter: 2021Q1

REPORT INFORMATION
  Report Type: Spontaneous
  Country: US (occurrence: US)
  Receive Date: 20210122
  Receipt Date: 20210122
  Transmission Date: 20210419
  Serious: No
  Sender: FDA-Public Use
  Company Number: US-GLAXOSMITHKLINE-US2021008418

PATIENT
  Age: 76 Year
  Sex: Female

DRUGS (3)
  1. ANORO ELLIPTA [Suspect]
     Active Substance: UMECLIDINIUM BROMIDE\VILANTEROL TRIFENATATE
     Indication: PRODUCT USED FOR UNKNOWN INDICATION
     Dosage: 1 PUFF(S), QD
     Route: 055
  2. AMOXICILLIN. [Suspect]
     Active Substance: AMOXICILLIN
     Indication: TOOTH IMPACTED
     Dosage: UNK 7 DAY COURSE
  3. TRELEGY ELLIPTA [Suspect]
     Active Substance: FLUTICASONE FUROATE\UMECLIDINIUM BROMIDE\VILANTEROL TRIFENATATE
     Indication: PRODUCT USED FOR UNKNOWN INDICATION
     Dosage: UNK

REACTIONS (7)
  - Product taste abnormal [Unknown]
  - Oral pain [Not Recovered/Not Resolved]
  - Ear pain [Unknown]
  - Pain in extremity [Unknown]
  - Drug ineffective [Unknown]
  - Tooth impacted [Unknown]
  - Pain [Unknown]

NARRATIVE: CASE EVENT DATE: 202012
